FAERS Safety Report 23399709 (Version 2)
Quarter: 2024Q1

REPORT INFORMATION
  Report Type: Spontaneous
  Country: CA (occurrence: CA)
  Receive Date: 20240113
  Receipt Date: 20240228
  Transmission Date: 20240409
  Serious: Yes (Death, Life-Threatening, Hospitalization)
  Sender: FDA-Public Use
  Company Number: CA-TEVA-VS-3135616

PATIENT
  Age: 64 Year
  Sex: Male

DRUGS (8)
  1. METHOTREXATE [Suspect]
     Active Substance: METHOTREXATE
     Indication: Rheumatoid arthritis
     Route: 058
  2. SULFASALAZINE [Suspect]
     Active Substance: SULFASALAZINE
     Indication: Rheumatoid arthritis
     Route: 048
  3. ALBENDAZOLE [Suspect]
     Active Substance: ALBENDAZOLE
     Indication: Strongyloidiasis
     Route: 048
  4. CEFTRIAXONE [Concomitant]
     Active Substance: CEFTRIAXONE\CEFTRIAXONE SODIUM
     Indication: Evidence based treatment
     Route: 065
  5. HYDROXYCHLOROQUINE [Suspect]
     Active Substance: HYDROXYCHLOROQUINE
     Indication: Rheumatoid arthritis
     Route: 048
  6. AZITHROMYCIN [Concomitant]
     Active Substance: AZITHROMYCIN
     Indication: Evidence based treatment
     Route: 065
  7. IVERMECTIN [Suspect]
     Active Substance: IVERMECTIN
     Indication: Strongyloidiasis
     Route: 048
  8. DEXAMETHASONE [Suspect]
     Active Substance: DEXAMETHASONE
     Indication: COVID-19 pneumonia
     Route: 042

REACTIONS (10)
  - Strongyloidiasis [Fatal]
  - Disseminated strongyloidiasis [Fatal]
  - Off label use [Fatal]
  - Acute kidney injury [Not Recovered/Not Resolved]
  - Sepsis [Fatal]
  - Respiratory distress [Not Recovered/Not Resolved]
  - Hypotension [Not Recovered/Not Resolved]
  - Pulmonary oedema [Not Recovered/Not Resolved]
  - Respiratory failure [Not Recovered/Not Resolved]
  - Drug ineffective [Fatal]
